FAERS Safety Report 8844590 (Version 1)
Quarter: 2012Q4

REPORT INFORMATION
  Report Type: 
  Country: US (occurrence: US)
  Receive Date: 20121017
  Receipt Date: 20121017
  Transmission Date: 20130627
  Serious: No
  Sender: FDA-Public Use
  Company Number: US-PFIZER INC-2012255022

PATIENT
  Sex: Female

DRUGS (2)
  1. ADVIL [Suspect]
     Indication: ANTIPYRESIS
     Dosage: 50 mg, every six to eight hours
     Route: 048
  2. ADVIL [Suspect]
     Dosage: 50 mg, UNK
     Route: 048

REACTIONS (5)
  - Inappropriate schedule of drug administration [Unknown]
  - Body temperature decreased [Unknown]
  - Balance disorder [Unknown]
  - Gait disturbance [Unknown]
  - Tremor [Unknown]
